FAERS Safety Report 8312248-4 (Version None)
Quarter: 2012Q2

REPORT INFORMATION
  Report Type: 
  Country: None (occurrence: None)
  Receive Date: 20120425
  Receipt Date: 20120419
  Transmission Date: 20120825
  Serious: Yes (Other)
  Sender: FDA-Public Use
  Company Number: PT-ABBOTT-11P-130-0710307-00

PATIENT
  Sex: Female

DRUGS (4)
  1. PARACETAMOL [Concomitant]
     Indication: HEADACHE
     Route: 048
  2. INSULATARD NPH HUMAN [Concomitant]
     Indication: GESTATIONAL DIABETES
     Dosage: 4U + 2U
     Route: 058
     Dates: start: 20101202
  3. HUMIRA [Suspect]
     Indication: CROHN'S DISEASE
     Route: 058
     Dates: start: 20080415, end: 20101217
  4. FOLIC ACID [Concomitant]
     Indication: PREGNANCY
     Dosage: 1CP

REACTIONS (2)
  - THREATENED LABOUR [None]
  - GESTATIONAL DIABETES [None]
